FAERS Safety Report 19797844 (Version 1)
Quarter: 2021Q3

REPORT INFORMATION
  Report Type: Spontaneous
  Country: US (occurrence: US)
  Receive Date: 20210906
  Receipt Date: 20210906
  Transmission Date: 20211014
  Serious: Yes (Hospitalization)
  Sender: FDA-Public Use
  Company Number: None

PATIENT
  Age: 94 Year
  Sex: Female
  Weight: 63 kg

DRUGS (5)
  1. SKYRIZI [Suspect]
     Active Substance: RISANKIZUMAB-RZAA
     Indication: PSORIATIC ARTHROPATHY
     Dates: start: 20210107, end: 20210209
  2. VITAMIN C [Concomitant]
     Active Substance: ASCORBIC ACID
  3. BLOOD PRESSURE MEDICINE [Concomitant]
     Active Substance: UNSPECIFIED INGREDIENT
  4. LUTIEN [Concomitant]
  5. VIT. D [Concomitant]
     Active Substance: VITAMIN D NOS

REACTIONS (1)
  - Gastric ulcer [None]

NARRATIVE: CASE EVENT DATE: 20210301
